FAERS Safety Report 22320108 (Version 1)
Quarter: 2023Q2

REPORT INFORMATION
  Report Type: Spontaneous
  Country: JP (occurrence: JP)
  Receive Date: 20230515
  Receipt Date: 20230515
  Transmission Date: 20230722
  Serious: Yes (Hospitalization)
  Sender: FDA-Public Use
  Company Number: JP-ELI_LILLY_AND_COMPANY-JP202305004358

PATIENT
  Age: 85 Year
  Sex: Male

DRUGS (18)
  1. TRULICITY [Suspect]
     Active Substance: DULAGLUTIDE
     Indication: Type 2 diabetes mellitus
     Dosage: UNK
  2. JARDIANCE [Concomitant]
     Active Substance: EMPAGLIFLOZIN
  3. EDOXABAN TOSYLATE [Concomitant]
     Active Substance: EDOXABAN TOSYLATE
  4. CLOPIDOGREL [Concomitant]
     Active Substance: CLOPIDOGREL BISULFATE
  5. CARVEDILOL [Concomitant]
     Active Substance: CARVEDILOL
  6. LAFUTIDINE [Concomitant]
     Active Substance: LAFUTIDINE
  7. ATORVASTATIN [Concomitant]
     Active Substance: ATORVASTATIN
  8. CELECOXIB [Concomitant]
     Active Substance: CELECOXIB
  9. LASIX [Concomitant]
     Active Substance: FUROSEMIDE
  10. SPIRONOLACTONE [Concomitant]
     Active Substance: SPIRONOLACTONE
  11. ENTRESTO [Concomitant]
     Active Substance: SACUBITRIL\VALSARTAN
  12. BERAPROST SODIUM [Concomitant]
     Active Substance: BERAPROST SODIUM
  13. SALAZAC [CAFFEINE;PARACETAMOL;SALICYLAMIDE] [Concomitant]
  14. DIMEMORFAN PHOSPHATE [Concomitant]
     Active Substance: DIMEMORFAN PHOSPHATE
  15. INSULIN LISPRO [Concomitant]
     Active Substance: INSULIN LISPRO
  16. AMARYL [Concomitant]
     Active Substance: GLIMEPIRIDE
  17. LINZESS [Concomitant]
     Active Substance: LINACLOTIDE
  18. SENNOSIDE A [Concomitant]
     Active Substance: SENNOSIDE A

REACTIONS (2)
  - Cerebral infarction [Recovering/Resolving]
  - Product storage error [Unknown]

NARRATIVE: CASE EVENT DATE: 20230505
